FAERS Safety Report 6518711-0 (Version None)
Quarter: 2009Q4

REPORT INFORMATION
  Report Type: 
  Country: None (occurrence: None)
  Receive Date: 20091228
  Receipt Date: 20091218
  Transmission Date: 20100525
  Serious: Yes (Hospitalization)
  Sender: FDA-Public Use
  Company Number: PHHO2009AU15883

PATIENT
  Sex: Female
  Weight: 97 kg

DRUGS (13)
  1. METOPROLOL TARTRATE [Suspect]
     Dosage: 100MG
     Dates: start: 20040101
  2. BLINDED CGS 20267 T30748+TAB [Suspect]
     Indication: BREAST CANCER
     Dosage: DOUBLE BLIND
     Route: 048
     Dates: start: 20090316, end: 20090928
  3. BLINDED NO TREATMENT RECEIVED NOMED [Suspect]
     Indication: BREAST CANCER
     Dosage: DOUBLE BLIND
     Route: 048
     Dates: start: 20090316, end: 20090928
  4. AMIODARONE HYDROCHLORIDE [Suspect]
     Dosage: 200MG
     Dates: start: 20090724, end: 20090725
  5. AMIODARONE HYDROCHLORIDE [Suspect]
     Dosage: 50MG
     Dates: start: 20090726
  6. OMEPRAZOLE MAGNESIUM [Suspect]
     Dosage: 20MG
     Dates: start: 20090724
  7. CLOPIDOGREL SULFATE [Suspect]
     Dosage: 75MG
     Dates: start: 20090724
  8. PERINDOPRIL [Suspect]
     Dosage: 5MG
     Dates: start: 20060101
  9. ATORVASTATIN CALCIUM [Suspect]
     Dosage: 20MG
     Dates: start: 20060101
  10. ASPIRIN [Suspect]
     Dosage: 300MG
     Dates: start: 20050101
  11. GLYCERYL TRINITRATE [Concomitant]
  12. FISH OIL [Concomitant]
  13. FRUSEMIDE [Concomitant]

REACTIONS (3)
  - ANGINA PECTORIS [None]
  - ATRIAL FIBRILLATION [None]
  - PULMONARY OEDEMA [None]
